FAERS Safety Report 5737321-6 (Version None)
Quarter: 2008Q2

REPORT INFORMATION
  Report Type: 
  Country: None (occurrence: None)
  Receive Date: 20080512
  Receipt Date: 20080512
  Transmission Date: 20081010
  Serious: Yes (Death, Hospitalization)
  Sender: FDA-Public Use
  Company Number: None

PATIENT
  Age: 79 Year
  Sex: Male
  Weight: 68.0396 kg

DRUGS (1)
  1. DIGITEK  .125 MCG  ACTAVIS [Suspect]
     Indication: CARDIAC DISORDER
     Dosage: .125 MCG ONCE DAILY PO
     Route: 048
     Dates: start: 20070201, end: 20080320

REACTIONS (6)
  - ANOREXIA [None]
  - CONFUSIONAL STATE [None]
  - DIZZINESS [None]
  - DRUG TOXICITY [None]
  - FALL [None]
  - INJURY [None]
